FAERS Safety Report 15137049 (Version 1)
Quarter: 2018Q3

REPORT INFORMATION
  Report Type: Spontaneous
  Country: US (occurrence: US)
  Receive Date: 20180712
  Receipt Date: 20180712
  Transmission Date: 20181010
  Serious: No
  Sender: FDA-Public Use
  Company Number: US-FOUNDATIONCONSUMERHC-2018-US-008676

PATIENT
  Age: 22 Year
  Sex: Female
  Weight: 86.18 kg

DRUGS (2)
  1. PLAN B ONE?STEP [Suspect]
     Active Substance: LEVONORGESTREL
     Indication: POST COITAL CONTRACEPTION
     Dosage: 1.5MG
     Route: 048
     Dates: start: 20180505, end: 20180505
  2. OXYCODONE UNPSECIFIED [Concomitant]
     Route: 048

REACTIONS (3)
  - Vaginal haemorrhage [Recovering/Resolving]
  - Dyspareunia [Unknown]
  - Abdominal pain lower [Recovered/Resolved]

NARRATIVE: CASE EVENT DATE: 20180508
